FAERS Safety Report 16852371 (Version 2)
Quarter: 2019Q4

REPORT INFORMATION
  Report Type: Spontaneous
  Country: JP (occurrence: JP)
  Receive Date: 20190925
  Receipt Date: 20191007
  Transmission Date: 20200122
  Serious: Yes (Other)
  Sender: FDA-Public Use
  Company Number: JP-JNJFOC-20190929855

PATIENT
  Age: 75 Year
  Sex: Male

DRUGS (8)
  1. RIVAROXABAN [Suspect]
     Active Substance: RIVAROXABAN
     Indication: PERCUTANEOUS CORONARY INTERVENTION
  2. CLOPIDOGREL SULFATE [Concomitant]
     Active Substance: CLOPIDOGREL BISULFATE
     Indication: THROMBOSIS PROPHYLAXIS
  3. RIVAROXABAN [Suspect]
     Active Substance: RIVAROXABAN
     Indication: THROMBOSIS PROPHYLAXIS
     Dosage: UNK
     Route: 048
     Dates: start: 20160701, end: 20170901
  4. BAYASPIRIN [Suspect]
     Active Substance: ASPIRIN
     Indication: THROMBOSIS PROPHYLAXIS
     Dosage: BAYASPIRIN 100 MG
     Route: 048
     Dates: start: 20160901, end: 20170301
  5. RIVAROXABAN [Suspect]
     Active Substance: RIVAROXABAN
     Indication: ATRIAL FIBRILLATION
  6. CLOPIDOGREL SULFATE [Concomitant]
     Active Substance: CLOPIDOGREL BISULFATE
     Indication: PERCUTANEOUS CORONARY INTERVENTION
  7. BAYASPIRIN [Suspect]
     Active Substance: ASPIRIN
     Indication: ACUTE CORONARY SYNDROME
  8. BAYASPIRIN [Suspect]
     Active Substance: ASPIRIN
     Indication: PERCUTANEOUS CORONARY INTERVENTION

REACTIONS (5)
  - Embolic cerebral infarction [Unknown]
  - Atrial fibrillation [Unknown]
  - Acute coronary syndrome [Unknown]
  - Angiocardiogram [Unknown]
  - Mitral valve repair [Unknown]

NARRATIVE: CASE EVENT DATE: 20160901
